FAERS Safety Report 12661265 (Version 2)
Quarter: 2016Q3

REPORT INFORMATION
  Report Type: Spontaneous
  Country: US (occurrence: US)
  Receive Date: 20160817
  Receipt Date: 20160901
  Transmission Date: 20161109
  Serious: No
  Sender: FDA-Public Use
  Company Number: US-RELYPSA-RLY2016000816

PATIENT
  Sex: Female

DRUGS (18)
  1. CARVEDILOL. [Concomitant]
     Active Substance: CARVEDILOL
  2. LISINOPRIL. [Concomitant]
     Active Substance: LISINOPRIL
  3. AZOPT [Concomitant]
     Active Substance: BRINZOLAMIDE
  4. FERROUS SULFATE. [Concomitant]
     Active Substance: FERROUS SULFATE
  5. SIMVASTATIN. [Concomitant]
     Active Substance: SIMVASTATIN
  6. ASPIRIN 81 [Concomitant]
     Active Substance: ASPIRIN
  7. AMLODIPINE BESYLATE. [Concomitant]
     Active Substance: AMLODIPINE BESYLATE
  8. PLAVIX [Concomitant]
     Active Substance: CLOPIDOGREL BISULFATE
  9. VELTASSA [Suspect]
     Active Substance: PATIROMER
     Indication: HYPERKALAEMIA
     Dosage: 8.4 G, QD
     Route: 048
  10. NORVASC [Concomitant]
     Active Substance: AMLODIPINE BESYLATE
  11. PANTOPRAZOLE SODIUM. [Concomitant]
     Active Substance: PANTOPRAZOLE SODIUM
  12. CALTRATE 600+D3 PLUS MINERALS      /07240601/ [Concomitant]
  13. MACROBID [Concomitant]
     Active Substance: NITROFURANTOIN\NITROFURANTOIN MONOHYDRATE
  14. PROBIOTIC + OMEGA-3 [Concomitant]
  15. VITAMIN D3 COMPLETE [Concomitant]
  16. AMITIZA [Concomitant]
     Active Substance: LUBIPROSTONE
  17. SODIUM POLYSTYRENE SULFONATE. [Concomitant]
     Active Substance: SODIUM POLYSTYRENE SULFONATE
  18. VITAMIN B12 [Concomitant]
     Active Substance: CYANOCOBALAMIN

REACTIONS (1)
  - Constipation [Not Recovered/Not Resolved]
